FAERS Safety Report 5946719-2 (Version None)
Quarter: 2008Q4

REPORT INFORMATION
  Report Type: 
  Country: None (occurrence: None)
  Receive Date: 20081110
  Receipt Date: 20081028
  Transmission Date: 20090506
  Serious: No
  Sender: FDA-Public Use
  Company Number: A0751588A

PATIENT
  Age: 17 Year
  Sex: Female
  Weight: 54.5 kg

DRUGS (2)
  1. ALTABAX [Suspect]
     Route: 061
  2. NO CONCURRENT MEDICATION [Concomitant]

REACTIONS (2)
  - BURNING SENSATION [None]
  - PAIN [None]
